FAERS Safety Report 13887129 (Version 1)
Quarter: 2017Q3

REPORT INFORMATION
  Report Type: Spontaneous
  Country: US (occurrence: US)
  Receive Date: 20170821
  Receipt Date: 20170821
  Transmission Date: 20171127
  Serious: Yes (Other)
  Sender: FDA-Public Use
  Company Number: US-ROCHE-1035348

PATIENT
  Sex: Female

DRUGS (1)
  1. ACTEMRA [Suspect]
     Active Substance: TOCILIZUMAB
     Indication: RHEUMATOID ARTHRITIS
     Route: 042

REACTIONS (6)
  - Lip swelling [Unknown]
  - Gingival erythema [Unknown]
  - Peripheral swelling [Unknown]
  - Skin warm [Unknown]
  - Dyspnoea [Unknown]
  - Gingival swelling [Unknown]
